FAERS Safety Report 4334152-9 (Version None)
Quarter: 2004Q2

REPORT INFORMATION
  Report Type: 
  Country: None (occurrence: None)
  Receive Date: 20040402
  Receipt Date: 20040323
  Transmission Date: 20050107
  Serious: Yes (Hospitalization)
  Sender: FDA-Public Use
  Company Number: FR-JNJFOC-20040305130

PATIENT
  Age: 49 Year
  Sex: Male

DRUGS (1)
  1. KETODERM (KETOCONAZOLE) CREAM [Suspect]
     Indication: DRUG USE FOR UNKNOWN INDICATION
     Dosage: 2 APPLICATIONS/DAY

REACTIONS (2)
  - ECZEMA [None]
  - ERYSIPELAS [None]
